FAERS Safety Report 9819867 (Version 1)
Quarter: 2013Q4

REPORT INFORMATION
  Report Type: Spontaneous
  Country: US (occurrence: None)
  Receive Date: 20131223
  Receipt Date: 20131223
  Transmission Date: 20140711
  Serious: No
  Sender: FDA-Public Use
  Company Number: 220925

PATIENT
  Sex: Male

DRUGS (6)
  1. PICATO [Suspect]
     Indication: ACTINIC KERATOSIS
     Dosage: (1 IN 1 D), TOPICAL
     Route: 061
     Dates: start: 20130310, end: 20130311
  2. ENALAPRIL (ENALAPRIL) (10 MG) [Concomitant]
  3. NORVASC (AMLODIPINE BESILATE) (10 MG) [Concomitant]
  4. PROTONIX (PANTOPRAZOLE ) (20 MG) [Concomitant]
  5. ZANTAC (RANITIDINE HYDROCHLORIDE) (150 MG) [Concomitant]
  6. BABY ASA (ACETYLSALICYLIC ACID) (81 MG) [Concomitant]

REACTIONS (2)
  - Application site pain [None]
  - Drug administration error [None]
